FAERS Safety Report 10154275 (Version 1)
Quarter: 2014Q2

REPORT INFORMATION
  Report Type: Spontaneous
  Country: GB (occurrence: None)
  Receive Date: 20140502
  Receipt Date: 20140502
  Transmission Date: 20141212
  Serious: Yes (Other)
  Sender: FDA-Public Use
  Company Number: 2313615

PATIENT
  Age: 73 Year
  Sex: Female

DRUGS (3)
  1. CEFTRIAXONE SODIUM [Suspect]
     Indication: GOUTY TOPHUS
     Dates: start: 20140320, end: 20140320
  2. (CALCIUM CARBONATE W/COLECALCIFEROL) [Concomitant]
  3. (ALENDRONIC ACID) [Concomitant]

REACTIONS (2)
  - Dystonia [None]
  - Emotional distress [None]
